FAERS Safety Report 8702702 (Version 3)
Quarter: 2012Q4

REPORT INFORMATION
  Report Type: 
  Country: US (occurrence: US)
  Receive Date: 20120803
  Receipt Date: 20121011
  Transmission Date: 20130627
  Serious: Yes (Hospitalization)
  Sender: FDA-Public Use
  Company Number: US-BAYER-2012-076073

PATIENT
  Age: 45 Year
  Sex: Female
  Weight: 114.29 kg

DRUGS (18)
  1. BETASERON [Suspect]
     Indication: RELAPSING-REMITTING MULTIPLE SCLEROSIS
     Dosage: UNK
     Dates: start: 20090218, end: 20091123
  2. BETASERON [Suspect]
     Indication: RELAPSING-REMITTING MULTIPLE SCLEROSIS
     Dosage: UNK
     Dates: start: 20100623, end: 20100815
  3. BETASERON [Suspect]
     Indication: RELAPSING-REMITTING MULTIPLE SCLEROSIS
     Dosage: 2 miu, QOD
     Route: 058
     Dates: start: 20120719
  4. UNSPECIFIED INGREDIENT [Suspect]
  5. MVI [Concomitant]
  6. FOLIC ACID [Concomitant]
     Dosage: 1 mg, QD
     Route: 048
  7. LORATADINE [Concomitant]
     Dosage: 10 mg, QD
     Route: 048
  8. WARFARIN [Concomitant]
     Dosage: 15 mg, HS
     Route: 048
     Dates: end: 20120721
  9. ERGOCALCIFEROL [Concomitant]
     Dosage: 50000 u, OW
     Route: 048
  10. LYRICA [Concomitant]
     Dosage: 75 mg, BID
     Route: 048
  11. ZOLPIDEM [Concomitant]
     Indication: SLEEP DISORDER THERAPY
     Dosage: 10 mg, HS
     Route: 048
  12. FERROUS SULFATE [Concomitant]
     Dosage: 650 mg, QD
     Route: 048
  13. BUSPIRONE [Concomitant]
     Indication: ANXIETY
     Dosage: 10 mg, HS up to 4x daily PRN
  14. CITALOPRAM [Concomitant]
     Dosage: 40 mg, QD
     Route: 048
  15. CYCLOBENZAPRINE [Concomitant]
     Indication: MUSCLE SPASMS
     Dosage: 5 mg, TID
     Route: 048
  16. GABAPENTIN [Concomitant]
     Dosage: 600 mg, TID
     Route: 048
  17. OXYCODONE [Concomitant]
     Indication: PAIN
     Dosage: 5 mg, QID PRN
     Route: 048
  18. LORTAB [Concomitant]
     Indication: PAIN
     Dosage: 10 mg, QID PRN

REACTIONS (11)
  - Angina unstable [Recovering/Resolving]
  - Nausea [Recovering/Resolving]
  - Hyperhidrosis [Recovering/Resolving]
  - Dyspnoea exertional [Recovering/Resolving]
  - Myocardial ischaemia [Recovering/Resolving]
  - Left ventricular end-diastolic pressure increased [Recovering/Resolving]
  - Chest pain [Recovered/Resolved]
  - Pericardial effusion [Recovering/Resolving]
  - Urinary retention [None]
  - Bladder discomfort [None]
  - Coronary artery disease [None]
